FAERS Safety Report 5938043-9 (Version None)
Quarter: 2008Q4

REPORT INFORMATION
  Report Type: 
  Country: None (occurrence: None)
  Receive Date: 20081031
  Receipt Date: 20081019
  Transmission Date: 20090506
  Serious: Yes (Hospitalization, Other)
  Sender: FDA-Public Use
  Company Number: IL-PFIZER INC-2008086052

PATIENT
  Age: 63 Year
  Sex: Male

DRUGS (2)
  1. SUTENT [Suspect]
     Indication: RENAL CELL CARCINOMA
     Route: 048
     Dates: start: 20080801, end: 20080921
  2. ATENOLOL [Concomitant]

REACTIONS (10)
  - ANOREXIA [None]
  - ASTHENIA [None]
  - HYPERTENSION [None]
  - NAUSEA [None]
  - PULMONARY OEDEMA [None]
  - THYROID FUNCTION TEST ABNORMAL [None]
  - VOMITING [None]
  - WEIGHT DECREASED [None]
  - WOUND [None]
  - YELLOW SKIN [None]
